FAERS Safety Report 25314158 (Version 1)
Quarter: 2025Q2

REPORT INFORMATION
  Report Type: Spontaneous
  Country: US (occurrence: US)
  Receive Date: 20250514
  Receipt Date: 20250514
  Transmission Date: 20250716
  Serious: No
  Sender: ABBVIE
  Company Number: US-ABBVIE-6271665

PATIENT
  Age: 73 Year
  Sex: Female
  Weight: 50 kg

DRUGS (1)
  1. BOTULINUM TOXIN NOS [Suspect]
     Active Substance: BOTULINUM TOXIN NOS
     Indication: Muscle spasticity
     Route: 065
     Dates: start: 202501, end: 202501

REACTIONS (5)
  - Abdominal discomfort [Not Recovered/Not Resolved]
  - Fatigue [Recovered/Resolved]
  - Asthenia [Not Recovered/Not Resolved]
  - Fatigue [Not Recovered/Not Resolved]
  - Asthenia [Recovered/Resolved]

NARRATIVE: CASE EVENT DATE: 20250122
